FAERS Safety Report 5738072-4 (Version None)
Quarter: 2008Q2

REPORT INFORMATION
  Report Type: 
  Country: None (occurrence: None)
  Receive Date: 20080509
  Receipt Date: 20070914
  Transmission Date: 20081010
  Serious: Yes (Other)
  Sender: FDA-Public Use
  Company Number: HQWYE224519SEP07

PATIENT
  Age: 55 Year
  Sex: Female

DRUGS (8)
  1. PROTONIX [Suspect]
     Dosage: ^4CC^ OF 40 MG DOSE, INTRAVENOUS
     Route: 042
     Dates: start: 20070809, end: 20070809
  2. DARVOCET-N (DEXTROPROPOXYPHENE/PARACETAMOL) [Concomitant]
  3. MORPHINE SULFATE [Concomitant]
  4. TORADOL [Concomitant]
  5. FLAGYL [Concomitant]
  6. ATIVAN [Concomitant]
  7. GENTAMICIN SULFATE [Concomitant]
  8. TIGAN [Concomitant]

REACTIONS (4)
  - COLD SWEAT [None]
  - ERUCTATION [None]
  - FEELING COLD [None]
  - NAUSEA [None]
